FAERS Safety Report 5957086-2 (Version None)
Quarter: 2008Q4

REPORT INFORMATION
  Report Type: 
  Country: None (occurrence: None)
  Receive Date: 20081118
  Receipt Date: 20081106
  Transmission Date: 20090506
  Serious: Yes (Hospitalization)
  Sender: FDA-Public Use
  Company Number: GB-PFIZER INC-2008094922

PATIENT
  Sex: Male
  Weight: 92 kg

DRUGS (4)
  1. SU-011,248 [Suspect]
     Indication: RENAL CELL CARCINOMA
     Route: 048
     Dates: start: 20060227
  2. GAVISCON [Concomitant]
     Route: 048
     Dates: start: 20080221
  3. BENDROFLUAZIDE [Concomitant]
     Route: 048
     Dates: start: 20060525, end: 20081105
  4. AMLODIPINE [Concomitant]
     Route: 048
     Dates: start: 20060914, end: 20081105

REACTIONS (1)
  - ACUTE MYOCARDIAL INFARCTION [None]
